FAERS Safety Report 10160249 (Version 1)
Quarter: 2014Q2

REPORT INFORMATION
  Report Type: Spontaneous
  Country: CA (occurrence: CA)
  Receive Date: 20140508
  Receipt Date: 20140508
  Transmission Date: 20141212
  Serious: Yes (Other)
  Sender: FDA-Public Use
  Company Number: CA-B.I. PHARMACEUTICALS,INC./RIDGEFIELD-2014-BI-20241GD

PATIENT
  Age: 93 Year
  Sex: Male

DRUGS (10)
  1. TELMISARTAN [Suspect]
     Indication: CORONARY ARTERY DISEASE
     Dosage: 80 MG
     Route: 065
  2. TELMISARTAN [Suspect]
     Indication: MYOCARDIAL INFARCTION
  3. PANTOPRAZOLE [Suspect]
     Indication: GASTROINTESTINAL HAEMORRHAGE
     Dosage: 80 MG
     Route: 065
  4. PREDNISONE [Suspect]
     Indication: PEMPHIGOID
     Dosage: 10 MG
     Route: 065
  5. METOPROLOL [Suspect]
     Indication: CORONARY ARTERY DISEASE
     Dosage: 50 MG
     Route: 065
  6. METOPROLOL [Suspect]
     Indication: MYOCARDIAL INFARCTION
  7. ESCITALOPRAM [Suspect]
     Indication: DEPRESSION
     Dosage: 10 MG
     Route: 065
  8. LORAZEPAM [Suspect]
     Indication: INSOMNIA
     Dosage: 1 MG
     Route: 065
  9. TAMSULOSINE [Concomitant]
     Indication: NOCTURIA
     Dosage: 0.4 MG
     Route: 065
  10. LOPERAMIDE [Concomitant]
     Indication: DIARRHOEA
     Dosage: 1 MG
     Route: 065

REACTIONS (18)
  - Fall [Recovered/Resolved]
  - Hypotension [Recovered/Resolved]
  - Orthostatic hypotension [Unknown]
  - Dizziness [Recovered/Resolved]
  - Diarrhoea [Recovered/Resolved]
  - Hyponatraemia [Unknown]
  - Fatigue [Unknown]
  - Somnolence [Unknown]
  - Osteoporosis [Unknown]
  - Laceration [Unknown]
  - Balance disorder [Unknown]
  - Depressed mood [Recovered/Resolved]
  - Asthenia [Recovered/Resolved]
  - Anhedonia [Recovered/Resolved]
  - Weight decreased [Unknown]
  - Decreased appetite [Unknown]
  - Vitamin D deficiency [Recovered/Resolved]
  - Vitamin B12 deficiency [Unknown]
